FAERS Safety Report 9752607 (Version 1)
Quarter: 2013Q4

REPORT INFORMATION
  Report Type: Spontaneous
  Country: JP (occurrence: None)
  Receive Date: 20131211
  Receipt Date: 20131211
  Transmission Date: 20140711
  Serious: Yes (Hospitalization)
  Sender: FDA-Public Use
  Company Number: DSJ-2013-24643

PATIENT
  Age: 73 Year
  Sex: Male

DRUGS (8)
  1. OLMETEC [Suspect]
     Indication: HYPERTENSION
     Dosage: 20 MG, PER ORAL
     Route: 048
     Dates: end: 20131011
  2. CLINDAMYCIN [Suspect]
     Dates: end: 20131004
  3. MEVALOTIN (PRAVASTATIN SODIUM) (PRAVASTATIN SODIUM)) [Concomitant]
  4. SIGMART (NICORANDIL) (NICORANDIL) [Concomitant]
  5. PRAVASTATIN NA (PRAVASTATIN SODIUM) (PRAVASTATIN SODIUM) [Concomitant]
  6. MAINTATE (BISOPROLOL FUMARATE) (BISOPROLOL) [Concomitant]
  7. NEXIUM (ESOMEPRAZOLE MAGNESIUM) (ESOMEEPRAZOLE MAGNESIUM) [Concomitant]
  8. NICORANDIL (NICORANDIL) (NICORANDIL) [Concomitant]

REACTIONS (1)
  - Neutropenia [None]
